FAERS Safety Report 4441536-7 (Version None)
Quarter: 2004Q3

REPORT INFORMATION
  Report Type: 
  Country: None (occurrence: None)
  Receive Date: 20040728
  Receipt Date: 20040308
  Transmission Date: 20050211
  Serious: No
  Sender: FDA-Public Use
  Company Number: US_0403101497

PATIENT
  Age: 9 Year
  Sex: Female
  Weight: 29 kg

DRUGS (3)
  1. STRATTERA [Suspect]
     Indication: ATTENTION DEFICIT/HYPERACTIVITY DISORDER
     Dosage: 25 MG DAY
     Dates: start: 20031115
  2. RITALIN [Concomitant]
  3. CONCERTA [Concomitant]

REACTIONS (3)
  - CONSTIPATION [None]
  - DECREASED APPETITE [None]
  - DISTURBANCE IN ATTENTION [None]
